FAERS Safety Report 18682089 (Version 2)
Quarter: 2021Q1

REPORT INFORMATION
  Report Type: Spontaneous
  Country: US (occurrence: US)
  Receive Date: 20201230
  Receipt Date: 20210115
  Transmission Date: 20210419
  Serious: Yes (Hospitalization)
  Sender: FDA-Public Use
  Company Number: US-ASTRAZENECA-2020SF73902

PATIENT
  Sex: Male
  Weight: 88 kg

DRUGS (1)
  1. BYDUREON BCISE [Suspect]
     Active Substance: EXENATIDE
     Indication: DIABETES MELLITUS
     Route: 058
     Dates: start: 202008

REACTIONS (19)
  - Organ failure [Unknown]
  - Blood potassium decreased [Unknown]
  - Back pain [Unknown]
  - Diabetic ketoacidosis [Unknown]
  - Hypoaesthesia [Unknown]
  - Hyperventilation [Unknown]
  - Heart rate increased [Unknown]
  - Wrong technique in device usage process [Unknown]
  - Pain in extremity [Unknown]
  - Stress [Unknown]
  - Pancreatic failure [Unknown]
  - Blood glucose increased [Unknown]
  - Hepatic failure [Unknown]
  - Renal failure [Unknown]
  - Glycosylated haemoglobin increased [Unknown]
  - Urticaria [Unknown]
  - Weight decreased [Unknown]
  - Arthritis [Unknown]
  - Device leakage [Unknown]
